FAERS Safety Report 7787362-2 (Version None)
Quarter: 2011Q3

REPORT INFORMATION
  Report Type: 
  Country: None (occurrence: None)
  Receive Date: 20110929
  Receipt Date: 20110921
  Transmission Date: 20111222
  Serious: Yes (Other)
  Sender: FDA-Public Use
  Company Number: PHEH2011US04463

PATIENT
  Sex: Female
  Weight: 54.422 kg

DRUGS (5)
  1. MIRALAX [Concomitant]
  2. FOSAMAX [Concomitant]
  3. GILENYA [Suspect]
     Indication: MULTIPLE SCLEROSIS
     Dosage: 0.5 MG, QD
     Route: 048
     Dates: start: 20110801, end: 20110914
  4. ZOLOFT [Concomitant]
  5. TOPAMAX [Concomitant]

REACTIONS (4)
  - VERTIGO [None]
  - CHEST PAIN [None]
  - LOSS OF CONSCIOUSNESS [None]
  - MIGRAINE [None]
